FAERS Safety Report 18034186 (Version 2)
Quarter: 2020Q4

REPORT INFORMATION
  Report Type: Report from Study
  Country: US (occurrence: US)
  Receive Date: 20200716
  Receipt Date: 20201012
  Transmission Date: 20210113
  Serious: Yes (Hospitalization)
  Sender: FDA-Public Use
  Company Number: US-EISAI MEDICAL RESEARCH-EC-2020-077369

PATIENT
  Age: 50 Year
  Sex: Female

DRUGS (1)
  1. LENVIMA [Suspect]
     Active Substance: LENVATINIB
     Indication: RENAL CANCER
     Route: 048
     Dates: start: 20200624, end: 202009

REACTIONS (12)
  - Oral discomfort [Unknown]
  - Oral pain [Unknown]
  - Urinary tract infection [Not Recovered/Not Resolved]
  - Renal haemorrhage [Unknown]
  - Carbon dioxide increased [Unknown]
  - Dry mouth [Not Recovered/Not Resolved]
  - Taste disorder [Unknown]
  - Urinary bladder haemorrhage [Unknown]
  - Fatigue [Unknown]
  - Insomnia [Not Recovered/Not Resolved]
  - Muscle twitching [Not Recovered/Not Resolved]
  - Hallucination [Unknown]

NARRATIVE: CASE EVENT DATE: 2020
